FAERS Safety Report 18787565 (Version 2)
Quarter: 2021Q2

REPORT INFORMATION
  Report Type: Spontaneous
  Country: IT (occurrence: IT)
  Receive Date: 20210126
  Receipt Date: 20210408
  Transmission Date: 20210717
  Serious: Yes (Other)
  Sender: FDA-Public Use
  Company Number: IT-PFIZER INC-2021055723

PATIENT
  Age: 66 Year
  Sex: Male
  Weight: 95 kg

DRUGS (7)
  1. NEURONTIN [Suspect]
     Active Substance: GABAPENTIN
     Indication: PRURITUS
     Dosage: UNK, SUSPENDED ABOUT 20 DAYS AGO
  2. COUMADIN [Interacting]
     Active Substance: WARFARIN SODIUM
     Indication: ANTICOAGULANT THERAPY
     Dosage: 3/4 OR 1 TABLET (DEPENDS OF INR), 1X/DAY
     Route: 048
     Dates: start: 2020
  3. PALEXIA [Interacting]
     Active Substance: TAPENTADOL HYDROCHLORIDE
     Dosage: 100 MG, 1X/DAY
     Route: 065
  4. PANTOPRAZOLE [Concomitant]
     Active Substance: PANTOPRAZOLE
     Dosage: UNK
  5. INSULIN [Concomitant]
     Active Substance: INSULIN NOS
     Dosage: 31 MG, DAILY
  6. CORTISONE [Concomitant]
     Active Substance: CORTISONE
  7. POTASSIUM [Concomitant]
     Active Substance: POTASSIUM
     Dosage: 1 DF

REACTIONS (12)
  - Drug interaction [Unknown]
  - Erectile dysfunction [Unknown]
  - Diabetes mellitus [Unknown]
  - Feeling hot [Unknown]
  - Hyperhidrosis [Unknown]
  - Peripheral coldness [Unknown]
  - Blood viscosity increased [Unknown]
  - International normalised ratio decreased [Not Recovered/Not Resolved]
  - Escherichia urinary tract infection [Unknown]
  - Sexual dysfunction [Unknown]
  - Pallor [Unknown]
  - Off label use [Unknown]
